FAERS Safety Report 10477401 (Version 2)
Quarter: 2014Q4

REPORT INFORMATION
  Report Type: Spontaneous
  Country: CN (occurrence: CN)
  Receive Date: 20140926
  Receipt Date: 20141002
  Transmission Date: 20150528
  Serious: Yes (Other)
  Sender: FDA-Public Use
  Company Number: CN-JNJFOC-20140916488

PATIENT
  Age: 59 Year
  Sex: Female

DRUGS (2)
  1. HEPARIN [Concomitant]
     Active Substance: HEPARIN SODIUM
     Route: 065
  2. XARELTO [Suspect]
     Active Substance: RIVAROXABAN
     Indication: PRODUCT USED FOR UNKNOWN INDICATION
     Dosage: FOR 3 OR 4 DAYS
     Route: 048
     Dates: start: 20140910, end: 20140916

REACTIONS (5)
  - Anorectal discomfort [Unknown]
  - Vulvovaginal discomfort [Unknown]
  - Gingival bleeding [Recovered/Resolved]
  - Vulvovaginal pain [Unknown]
  - Rectal tenesmus [Unknown]

NARRATIVE: CASE EVENT DATE: 20140917
